FAERS Safety Report 20214589 (Version 4)
Quarter: 2022Q1

REPORT INFORMATION
  Report Type: Spontaneous
  Country: JP (occurrence: JP)
  Receive Date: 20211221
  Receipt Date: 20220308
  Transmission Date: 20220424
  Serious: Yes (Hospitalization, Other)
  Sender: FDA-Public Use
  Company Number: JP-BRISTOL-MYERS SQUIBB COMPANY-BMS-2021-137200

PATIENT
  Age: 64 Year
  Sex: Male
  Weight: 48.5 kg

DRUGS (5)
  1. YERVOY [Suspect]
     Active Substance: IPILIMUMAB
     Indication: Malignant melanoma
     Dosage: 168 MILLIGRAM
     Route: 041
     Dates: start: 20210707, end: 20210728
  2. OPDIVO [Suspect]
     Active Substance: NIVOLUMAB
     Indication: Malignant melanoma
     Dosage: 480 MILLIGRAM, MONOTHERAPY
     Route: 041
     Dates: start: 20201124, end: 20210609
  3. OPDIVO [Suspect]
     Active Substance: NIVOLUMAB
     Dosage: 80 MILLIGRAM, COMBINATION THERAPY
     Route: 041
     Dates: start: 20210707, end: 20210728
  4. CARBOCYSTEINE [Concomitant]
     Active Substance: CARBOCYSTEINE
     Indication: Product used for unknown indication
     Dosage: 1500 MILLIGRAM
     Route: 065
     Dates: end: 20210825
  5. FEXOFENADINE [Concomitant]
     Active Substance: FEXOFENADINE HYDROCHLORIDE
     Indication: Product used for unknown indication
     Dosage: 120 MILLIGRAM
     Route: 065
     Dates: end: 20210904

REACTIONS (7)
  - Immune-mediated myositis [Not Recovered/Not Resolved]
  - Liver disorder [Recovering/Resolving]
  - Myasthenia gravis [Not Recovered/Not Resolved]
  - Eyelid oedema [Unknown]
  - Eyelid ptosis [Unknown]
  - Diplopia [Unknown]
  - Vision blurred [Unknown]

NARRATIVE: CASE EVENT DATE: 20210803
